FAERS Safety Report 4885860-2 (Version None)
Quarter: 2006Q1

REPORT INFORMATION
  Report Type: 
  Country: None (occurrence: None)
  Receive Date: 20060117
  Receipt Date: 20060103
  Transmission Date: 20060701
  Serious: Yes (Other)
  Sender: FDA-Public Use
  Company Number: 2006004160

PATIENT
  Age: 44 Year
  Sex: Male

DRUGS (6)
  1. VFEND [Suspect]
     Indication: CANDIDIASIS
  2. AUGMENTIN '125' [Concomitant]
  3. GENTAMICIN [Concomitant]
  4. AMIKIN [Concomitant]
  5. TAZOCILLINE (PIPERACILLIN SODIUM, TAZOBACTAM SODIUM) [Concomitant]
  6. FLUCONAZOLE [Concomitant]

REACTIONS (2)
  - PYREXIA [None]
  - SYSTEMIC INFLAMMATORY RESPONSE SYNDROME [None]
